FAERS Safety Report 24577467 (Version 1)
Quarter: 2024Q4

REPORT INFORMATION
  Report Type: Spontaneous
  Country: US (occurrence: US)
  Receive Date: 20241104
  Receipt Date: 20241104
  Transmission Date: 20250115
  Serious: No
  Sender: PERRIGO
  Company Number: US-PERRIGO-24US004889

PATIENT

DRUGS (1)
  1. POLYETHYLENE GLYCOL 3350 [Suspect]
     Active Substance: POLYETHYLENE GLYCOL 3350
     Indication: Bowel preparation
     Dosage: UNK, UNK
     Route: 048

REACTIONS (4)
  - Malaise [Unknown]
  - Nausea [Unknown]
  - Blood pressure increased [Unknown]
  - Product use in unapproved indication [Unknown]
